FAERS Safety Report 16106923 (Version 3)
Quarter: 2022Q2

REPORT INFORMATION
  Report Type: Spontaneous
  Country: CZ (occurrence: CZ)
  Receive Date: 20190322
  Receipt Date: 20220517
  Transmission Date: 20220721
  Serious: Yes (Other)
  Sender: FDA-Public Use
  Company Number: CZ-ACCORD-071775

PATIENT
  Age: 52 Year
  Sex: Female

DRUGS (7)
  1. IRINOTECAN [Suspect]
     Active Substance: IRINOTECAN
     Indication: Mucinous adenocarcinoma of appendix
     Dosage: UNK
     Dates: start: 201311
  2. OXALIPLATIN [Suspect]
     Active Substance: OXALIPLATIN
     Indication: Mucinous adenocarcinoma of appendix
     Dosage: UNK
  3. CAPECITABINE [Suspect]
     Active Substance: CAPECITABINE
     Indication: Mucinous adenocarcinoma of appendix
     Dosage: UNK
  4. LEUCOVORIN [Concomitant]
     Active Substance: LEUCOVORIN
     Indication: Mucinous adenocarcinoma of appendix
     Dosage: UNK
  5. BEVACIZUMAB [Concomitant]
     Active Substance: BEVACIZUMAB
     Indication: Metastases to lung
     Dosage: UNK
  6. BEVACIZUMAB [Concomitant]
     Active Substance: BEVACIZUMAB
     Indication: Mucinous adenocarcinoma of appendix
  7. FLUOROURACIL [Concomitant]
     Active Substance: FLUOROURACIL
     Indication: Mucinous adenocarcinoma of appendix
     Dosage: UNK

REACTIONS (6)
  - Drug intolerance [Unknown]
  - Haematotoxicity [Recovered/Resolved]
  - Hypersensitivity [Recovered/Resolved]
  - Palmar-plantar erythrodysaesthesia syndrome [Unknown]
  - Mucosal toxicity [Unknown]
  - Off label use [Unknown]
